FAERS Safety Report 15678200 (Version 1)
Quarter: 2018Q4

REPORT INFORMATION
  Report Type: Spontaneous
  Country: FR (occurrence: FR)
  Receive Date: 20181201
  Receipt Date: 20181201
  Transmission Date: 20190205
  Serious: Yes (Hospitalization)
  Sender: FDA-Public Use
  Company Number: FR-TEVA-2018-FR-980877

PATIENT
  Age: 54 Year
  Sex: Male

DRUGS (9)
  1. ISENTRESS [Suspect]
     Active Substance: RALTEGRAVIR POTASSIUM
     Indication: HIV INFECTION
     Dosage: NOT INFORMED
     Route: 048
     Dates: start: 201807
  2. TIORFAN [Concomitant]
     Active Substance: RACECADOTRIL
     Indication: DIARRHOEA
     Dosage: NOT INFORMED
     Route: 048
     Dates: start: 201807
  3. INTELENCE [Suspect]
     Active Substance: ETRAVIRINE
     Indication: HIV INFECTION
     Dosage: NOT INFORMED
     Route: 048
     Dates: start: 201807
  4. BISOPROLOL (FUMARATE DE) [Concomitant]
     Active Substance: BISOPROLOL FUMARATE
     Indication: HYPERTENSION
     Dosage: NOT INFORMED
     Route: 048
     Dates: start: 201807
  5. LAMIVUDINE. [Suspect]
     Active Substance: LAMIVUDINE
     Indication: HIV INFECTION
     Dosage: NOT INFORMED
     Route: 048
     Dates: start: 201807
  6. BACTRIM [Suspect]
     Active Substance: SULFAMETHOXAZOLE\TRIMETHOPRIM
     Indication: PROPHYLAXIS
     Dosage: NOT INFORMED
     Route: 048
     Dates: start: 201807
  7. FUROSEMIDE. [Concomitant]
     Active Substance: FUROSEMIDE
     Indication: HYPERTENSION
     Dosage: NOT INFORMED
     Route: 048
     Dates: start: 201807
  8. PANTOPRAZOLE [Suspect]
     Active Substance: PANTOPRAZOLE
     Indication: PROPHYLAXIS
     Dosage: NOT INFORMED
     Route: 048
     Dates: start: 201807
  9. TRAMADOL BASE [Concomitant]
     Active Substance: TRAMADOL
     Indication: PAIN
     Dosage: NOT INFORMED
     Route: 048
     Dates: start: 201807

REACTIONS (1)
  - Drug reaction with eosinophilia and systemic symptoms [Recovering/Resolving]

NARRATIVE: CASE EVENT DATE: 20181018
